FAERS Safety Report 26216619 (Version 1)
Quarter: 2025Q4

REPORT INFORMATION
  Report Type: Spontaneous
  Country: CN (occurrence: CN)
  Receive Date: 20251231
  Receipt Date: 20251231
  Transmission Date: 20260118
  Serious: Yes (Other)
  Sender: RANBAXY
  Company Number: CN-SUN PHARMACEUTICAL INDUSTRIES INC-2025R1-543977

PATIENT
  Age: 28 Year
  Sex: Male

DRUGS (1)
  1. AMINOLEVULINIC ACID [Suspect]
     Active Substance: AMINOLEVULINIC ACID
     Indication: Anogenital warts
     Dosage: 6 SESSIONS
     Route: 065

REACTIONS (3)
  - Disease recurrence [Unknown]
  - Skin irritation [Unknown]
  - Skin burning sensation [Unknown]
